FAERS Safety Report 18701724 (Version 1)
Quarter: 2021Q1

REPORT INFORMATION
  Report Type: Spontaneous
  Country: SI (occurrence: SI)
  Receive Date: 20210105
  Receipt Date: 20210105
  Transmission Date: 20210419
  Serious: Yes (Other)
  Sender: FDA-Public Use
  Company Number: SI-CELGENEUS-SVN-20201207721

PATIENT
  Age: 58 Year
  Sex: Male

DRUGS (2)
  1. AZACITIDINE. [Suspect]
     Active Substance: AZACITIDINE
     Indication: CHRONIC MYELOMONOCYTIC LEUKAEMIA
     Dosage: 17.5 MILLIGRAM/SQ. METER
     Route: 065
  2. AZACITIDINE. [Suspect]
     Active Substance: AZACITIDINE
     Dosage: 75 MILLIGRAM
     Route: 065

REACTIONS (4)
  - Respiratory tract infection [Unknown]
  - Myocardial ischaemia [Unknown]
  - Neutropenia [Unknown]
  - Myelosuppression [Unknown]
